FAERS Safety Report 6442693-3 (Version None)
Quarter: 2009Q4

REPORT INFORMATION
  Report Type: 
  Country: None (occurrence: None)
  Receive Date: 20091117
  Receipt Date: 20091112
  Transmission Date: 20100525
  Serious: Yes (Hospitalization)
  Sender: FDA-Public Use
  Company Number: AR-ROCHE-657784

PATIENT
  Sex: Female
  Weight: 43.7 kg

DRUGS (8)
  1. MYCOPHENOLATE MOFETIL [Suspect]
     Indication: LUPUS NEPHRITIS
     Dosage: LAST DOSE PRIOR TO SAE: 17 SEPTEMBER 2009.  FREQUENCY REPORTED AS QD.
     Route: 048
     Dates: start: 20081127
  2. OCRELIZUMAB [Suspect]
     Indication: LUPUS NEPHRITIS
     Dosage: LAST DOSE PRIOR TO SAE WAS 14 JULY 2009.
     Route: 042
     Dates: start: 20081127
  3. MEPREDNISONE [Suspect]
     Indication: LUPUS NEPHRITIS
     Dosage: LAST DOSE PRIOR TO SAE: 17 SEPTEMBER 2009.
     Route: 048
     Dates: start: 20090807
  4. HYDROXYCHLOROQUINE SULFATE [Concomitant]
     Dates: start: 20081112
  5. D VITAMINE [Concomitant]
     Dates: start: 20081113
  6. CALCIUM CITRATE [Concomitant]
     Dates: start: 20081113
  7. ENALAPRIL MALEATE [Concomitant]
     Dates: start: 20081113
  8. LEVOTHYROXINE SODIUM [Concomitant]
     Dosage: DRUG NAME: LEVOTICOXINE.
     Dates: start: 20070329

REACTIONS (1)
  - ANOGENITAL WARTS [None]
